FAERS Safety Report 23626974 (Version 1)
Quarter: 2024Q1

REPORT INFORMATION
  Report Type: Report from Study
  Country: US (occurrence: US)
  Receive Date: 20240313
  Receipt Date: 20240313
  Transmission Date: 20240410
  Serious: No
  Sender: FDA-Public Use
  Company Number: US-SPRINGWORKS THERAPEUTICS-SW-000947

PATIENT
  Age: 18 Year
  Sex: Female
  Weight: 115 kg

DRUGS (2)
  1. NIROGACESTAT [Suspect]
     Active Substance: NIROGACESTAT
     Indication: Desmoid tumour
     Dosage: 90 MG/M2, BID
     Route: 048
     Dates: start: 20230324, end: 20230601
  2. NIROGACESTAT [Suspect]
     Active Substance: NIROGACESTAT
     Dosage: 90 UNK, BID
     Dates: start: 20230602, end: 20230623

REACTIONS (20)
  - Vomiting [Recovered/Resolved]
  - Vomiting [Recovered/Resolved]
  - Nausea [Recovered/Resolved]
  - Decreased appetite [Recovered/Resolved]
  - Menstruation irregular [Recovered/Resolved]
  - Hypertension [Recovered/Resolved]
  - Depression [Not Recovered/Not Resolved]
  - Urine analysis abnormal [Recovered/Resolved]
  - Constipation [Not Recovered/Not Resolved]
  - Dermatitis [Recovered/Resolved]
  - Nausea [Recovered/Resolved]
  - Vomiting [Recovered/Resolved]
  - Dermatitis acneiform [Recovered/Resolved]
  - Dandruff [Recovered/Resolved]
  - Migraine [Recovered/Resolved]
  - Back pain [Recovered/Resolved]
  - Peripheral sensory neuropathy [Not Recovered/Not Resolved]
  - Vision blurred [Recovered/Resolved]
  - Tinnitus [Recovered/Resolved]
  - Hypophosphataemia [Recovered/Resolved]

NARRATIVE: CASE EVENT DATE: 20230324
